FAERS Safety Report 14204504 (Version 1)
Quarter: 2017Q4

REPORT INFORMATION
  Report Type: Spontaneous
  Country: ZA (occurrence: ZA)
  Receive Date: 20171120
  Receipt Date: 20171120
  Transmission Date: 20180321
  Serious: Yes (Other)
  Sender: FDA-Public Use
  Company Number: ZA-PFIZER INC-2017497849

PATIENT
  Sex: Male
  Weight: 75 kg

DRUGS (3)
  1. ARAVA [Suspect]
     Active Substance: LEFLUNOMIDE
     Dosage: 20 MG, DAILY
     Dates: start: 2011
  2. METHOTREXATE. [Suspect]
     Active Substance: METHOTREXATE
     Dosage: 30 MG, WEEKLY
  3. CHLOROQUINE. [Suspect]
     Active Substance: CHLOROQUINE
     Dosage: 200 MG, DAILY
     Dates: start: 2010, end: 2013

REACTIONS (4)
  - Neuropathy peripheral [Unknown]
  - Maculopathy [Unknown]
  - Condition aggravated [Unknown]
  - Dyslipidaemia [Unknown]

NARRATIVE: CASE EVENT DATE: 2012
